FAERS Safety Report 7123023-0 (Version None)
Quarter: 2010Q4

REPORT INFORMATION
  Report Type: 
  Country: None (occurrence: None)
  Receive Date: 20101125
  Receipt Date: 20101103
  Transmission Date: 20110411
  Serious: Yes (Hospitalization)
  Sender: FDA-Public Use
  Company Number: DE-AMGEN-DEUCT2010003252

PATIENT

DRUGS (6)
  1. ETANERCEPT [Suspect]
     Indication: PSORIATIC ARTHROPATHY
     Dosage: 50 MG, QWK
     Dates: start: 20090903
  2. ETANERCEPT [Suspect]
     Indication: PSORIASIS
  3. VERAPAMIL [Concomitant]
     Indication: PSORIATIC ARTHROPATHY
  4. VERAPAMIL [Concomitant]
     Indication: PSORIASIS
  5. DOSS [Concomitant]
  6. ATACAND [Concomitant]

REACTIONS (1)
  - ROTATOR CUFF SYNDROME [None]
